FAERS Safety Report 5834823-9 (Version None)
Quarter: 2008Q3

REPORT INFORMATION
  Report Type: 
  Country: None (occurrence: None)
  Receive Date: 20080805
  Receipt Date: 20080728
  Transmission Date: 20090109
  Serious: Yes (Other)
  Sender: FDA-Public Use
  Company Number: US-ELI_LILLY_AND_COMPANY-US200807002848

PATIENT
  Sex: Male
  Weight: 87.075 kg

DRUGS (11)
  1. BYETTA [Suspect]
     Indication: TYPE 2 DIABETES MELLITUS
     Dosage: 5 UG, 2/D
     Route: 065
     Dates: start: 20080203, end: 20080402
  2. BYETTA [Suspect]
     Dosage: 10 UG, DAILY (1/D)
     Route: 065
     Dates: start: 20080402, end: 20080616
  3. CRESTOR [Concomitant]
     Indication: BLOOD CHOLESTEROL INCREASED
     Dosage: 5 MG, DAILY (1/D)
     Route: 065
     Dates: start: 20060101
  4. PLAVIX [Concomitant]
     Indication: CORONARY ARTERY DISEASE
     Dosage: 75 MG, DAILY (1/D)
     Route: 065
     Dates: start: 20060101
  5. ASPIRIN [Concomitant]
     Indication: CORONARY ARTERY DISEASE
     Dosage: 81 MG, DAILY (1/D)
     Route: 065
     Dates: start: 20000101
  6. METOPROLOL SUCCINATE [Concomitant]
     Indication: CORONARY ARTERY DISEASE
     Dosage: 25 MG, DAILY (1/D)
     Route: 065
     Dates: start: 20060101
  7. METFORMIN HCL [Concomitant]
     Indication: DIABETES MELLITUS
     Dosage: 1000 MG, 2/D
     Route: 065
     Dates: start: 19990101
  8. AVANDIA [Concomitant]
     Indication: DIABETES MELLITUS
     Dosage: 8 MG, DAILY (1/D)
     Route: 065
     Dates: start: 20040101
  9. AMARYL [Concomitant]
     Indication: DIABETES MELLITUS
     Dosage: 4 MG, DAILY (1/D)
     Route: 065
     Dates: start: 20030101
  10. ANDROGEL [Concomitant]
     Indication: HYPOGONADISM
     Dosage: 5 G, DAILY (1/D)
     Route: 065
     Dates: start: 20050101
  11. BENAZEPRIL HYDROCHLORIDE [Concomitant]
     Dosage: 20 MG, DAILY (1/D)
     Route: 065
     Dates: start: 20020101

REACTIONS (2)
  - PANCREATITIS [None]
  - WEIGHT DECREASED [None]
